APPROVED DRUG PRODUCT: SULFACETAMIDE SODIUM
Active Ingredient: SULFACETAMIDE SODIUM
Strength: 10%
Dosage Form/Route: SOLUTION/DROPS;OPHTHALMIC
Application: A088947 | Product #001
Applicant: PHARMAFAIR INC
Approved: May 17, 1985 | RLD: No | RS: No | Type: DISCN